FAERS Safety Report 23327608 (Version 6)
Quarter: 2024Q4

REPORT INFORMATION
  Report Type: Report from Study
  Country: MX (occurrence: MX)
  Receive Date: 20231221
  Receipt Date: 20241010
  Transmission Date: 20250114
  Serious: Yes (Hospitalization, Other)
  Sender: NOVARTIS
  Company Number: MX-002147023-NVSC2023MX098824

PATIENT
  Sex: Female
  Weight: 49 kg

DRUGS (4)
  1. GILENYA [Suspect]
     Active Substance: FINGOLIMOD HYDROCHLORIDE
     Indication: Multiple sclerosis
     Dosage: 1 DOSAGE FORM (0.5), QD
     Route: 048
     Dates: start: 202211, end: 202409
  2. GILENYA [Suspect]
     Active Substance: FINGOLIMOD HYDROCHLORIDE
     Dosage: 1 DOSAGE FORM (0.5 MG), QD
     Route: 048
     Dates: start: 202212
  3. GILENYA [Suspect]
     Active Substance: FINGOLIMOD HYDROCHLORIDE
     Dosage: 1 DOSAGE FORM, (0.5 MG), EVERY OTHER DAY, FOR ONE WEEK
     Route: 048
     Dates: start: 202409
  4. GILENYA [Suspect]
     Active Substance: FINGOLIMOD HYDROCHLORIDE
     Dosage: 1 DOSAGE FORM, QD, (0.5 MG)
     Route: 048
     Dates: start: 202409

REACTIONS (19)
  - Urinary tract infection [Not Recovered/Not Resolved]
  - Multiple sclerosis [Unknown]
  - Weight gain poor [Not Recovered/Not Resolved]
  - Groin pain [Unknown]
  - Gait inability [Not Recovered/Not Resolved]
  - Fall [Unknown]
  - Asthenia [Unknown]
  - Pain in extremity [Not Recovered/Not Resolved]
  - Arthralgia [Not Recovered/Not Resolved]
  - Gait disturbance [Not Recovered/Not Resolved]
  - Lymphocyte count decreased [Recovered/Resolved]
  - Tongue disorder [Not Recovered/Not Resolved]
  - Drug ineffective [Unknown]
  - Insomnia [Recovering/Resolving]
  - Dysuria [Not Recovered/Not Resolved]
  - Hypoaesthesia [Not Recovered/Not Resolved]
  - Pharyngitis [Not Recovered/Not Resolved]
  - Illness [Not Recovered/Not Resolved]
  - Stress [Not Recovered/Not Resolved]

NARRATIVE: CASE EVENT DATE: 20220101
